FAERS Safety Report 26094739 (Version 2)
Quarter: 2025Q4

REPORT INFORMATION
  Report Type: Report from Study
  Country: AU (occurrence: AU)
  Receive Date: 20251126
  Receipt Date: 20251223
  Transmission Date: 20260117
  Serious: Yes (Hospitalization)
  Sender: JOHNSON AND JOHNSON
  Company Number: AU-JNJFOC-20251151973

PATIENT
  Sex: Male

DRUGS (4)
  1. RYBREVANT [Suspect]
     Active Substance: AMIVANTAMAB-VMJW
     Indication: Non-small cell lung cancer
  2. RYBREVANT [Suspect]
     Active Substance: AMIVANTAMAB-VMJW
  3. RYBREVANT [Suspect]
     Active Substance: AMIVANTAMAB-VMJW
     Dosage: WEEK 4 (3X 350MG VIAL), WEEKLY DOSE, FREE DOSE
  4. LAZCLUZE [Suspect]
     Active Substance: LAZERTINIB
     Indication: Non-small cell lung cancer
     Route: 048

REACTIONS (4)
  - Hypotension [Unknown]
  - Infusion related reaction [Unknown]
  - Skin toxicity [Not Recovered/Not Resolved]
  - Off label use [Unknown]
